FAERS Safety Report 22945370 (Version 4)
Quarter: 2025Q2

REPORT INFORMATION
  Report Type: Spontaneous
  Country: GB (occurrence: GB)
  Receive Date: 20230914
  Receipt Date: 20250602
  Transmission Date: 20250717
  Serious: Yes (Hospitalization, Other)
  Sender: SANDOZ
  Company Number: GB-MYLANLABS-2023M1078418

PATIENT
  Age: 38 Year
  Sex: Male

DRUGS (123)
  1. AMISULPRIDE [Suspect]
     Active Substance: AMISULPRIDE
     Dosage: 100 MG, QD
     Route: 065
     Dates: start: 200307
  2. AMISULPRIDE [Suspect]
     Active Substance: AMISULPRIDE
     Dosage: 100 MG, QD
     Route: 065
     Dates: start: 200307
  3. AMISULPRIDE [Suspect]
     Active Substance: AMISULPRIDE
     Dosage: 100 MG, QD
     Route: 065
     Dates: start: 200311
  4. AMISULPRIDE [Suspect]
     Active Substance: AMISULPRIDE
     Dosage: 100 MG, QD
     Route: 065
     Dates: start: 200407
  5. AMISULPRIDE [Suspect]
     Active Substance: AMISULPRIDE
     Dosage: 100 MG, QD
     Route: 065
     Dates: start: 200407
  6. AMISULPRIDE [Suspect]
     Active Substance: AMISULPRIDE
     Indication: Affective disorder
     Dosage: 200 MG, QD
     Route: 065
     Dates: start: 200301
  7. AMISULPRIDE [Suspect]
     Active Substance: AMISULPRIDE
     Dosage: 200 MG, QD
     Route: 065
     Dates: start: 200301
  8. AMISULPRIDE [Suspect]
     Active Substance: AMISULPRIDE
     Dosage: 200 MG, BID
     Route: 065
     Dates: start: 201509
  9. AMISULPRIDE [Suspect]
     Active Substance: AMISULPRIDE
     Dosage: 200 MG, BID
     Route: 065
     Dates: start: 201509
  10. AMISULPRIDE [Suspect]
     Active Substance: AMISULPRIDE
     Dosage: 200 MG, BID
     Route: 065
     Dates: start: 201605
  11. AMISULPRIDE [Suspect]
     Active Substance: AMISULPRIDE
     Dosage: 50 MG, QD
     Route: 065
     Dates: start: 200505
  12. AMISULPRIDE [Suspect]
     Active Substance: AMISULPRIDE
     Dosage: 50 MG, QD
     Route: 065
     Dates: start: 200505
  13. AMISULPRIDE [Suspect]
     Active Substance: AMISULPRIDE
     Dosage: 50 MG, BID
     Route: 065
     Dates: start: 2013
  14. AMISULPRIDE [Suspect]
     Active Substance: AMISULPRIDE
     Dosage: 50 MG, BID
     Route: 065
     Dates: start: 2013
  15. AMISULPRIDE [Suspect]
     Active Substance: AMISULPRIDE
     Dosage: 50 MG, BID
     Route: 065
     Dates: start: 201407, end: 201503
  16. AMISULPRIDE [Suspect]
     Active Substance: AMISULPRIDE
     Dosage: UNK UNK, QD
     Route: 065
     Dates: start: 200411
  17. AMISULPRIDE [Suspect]
     Active Substance: AMISULPRIDE
     Dosage: UNK UNK, QD
     Route: 065
     Dates: start: 200411
  18. AMISULPRIDE [Suspect]
     Active Substance: AMISULPRIDE
     Dosage: UNK UNK, BID (UNKNOWN DOSE IN THE MORNING, 100MG IN THE EVENING  )
     Route: 065
     Dates: start: 200311
  19. AMISULPRIDE [Suspect]
     Active Substance: AMISULPRIDE
     Route: 065
     Dates: start: 201607
  20. AMISULPRIDE [Suspect]
     Active Substance: AMISULPRIDE
     Route: 065
     Dates: start: 201607
  21. AMISULPRIDE [Suspect]
     Active Substance: AMISULPRIDE
     Route: 065
     Dates: start: 201606
  22. AMISULPRIDE [Suspect]
     Active Substance: AMISULPRIDE
     Route: 065
     Dates: start: 201606
  23. AMISULPRIDE [Suspect]
     Active Substance: AMISULPRIDE
     Route: 065
     Dates: start: 201605
  24. AMISULPRIDE [Suspect]
     Active Substance: AMISULPRIDE
     Route: 065
     Dates: start: 202201
  25. AMISULPRIDE [Suspect]
     Active Substance: AMISULPRIDE
     Route: 065
     Dates: start: 202201
  26. CITALOPRAM [Suspect]
     Active Substance: CITALOPRAM
     Indication: Depressed mood
     Dosage: 20 MG, QD
     Route: 065
     Dates: start: 200301
  27. CITALOPRAM [Suspect]
     Active Substance: CITALOPRAM
     Dosage: 20 MG, QD
     Route: 065
     Dates: start: 200311
  28. CITALOPRAM [Suspect]
     Active Substance: CITALOPRAM
     Dosage: 20 MG, QD
     Route: 065
     Dates: start: 200407
  29. CITALOPRAM [Suspect]
     Active Substance: CITALOPRAM
     Dosage: 20 MG, QD
     Route: 065
     Dates: start: 200411
  30. CITALOPRAM [Suspect]
     Active Substance: CITALOPRAM
     Dosage: 20 MG, QD
     Route: 065
     Dates: start: 200505
  31. CITALOPRAM [Suspect]
     Active Substance: CITALOPRAM
     Dosage: 20 MG, QD
     Route: 065
     Dates: start: 200301
  32. CITALOPRAM [Suspect]
     Active Substance: CITALOPRAM
     Dosage: 20 MG, QD
     Route: 065
     Dates: start: 200311
  33. CITALOPRAM [Suspect]
     Active Substance: CITALOPRAM
     Dosage: 20 MG, QD
     Route: 065
     Dates: start: 200407
  34. CITALOPRAM [Suspect]
     Active Substance: CITALOPRAM
     Dosage: 20 MG, QD
     Route: 065
     Dates: start: 200411
  35. CITALOPRAM [Suspect]
     Active Substance: CITALOPRAM
     Dosage: 20 MG, QD
     Route: 065
     Dates: start: 200505
  36. CITALOPRAM [Suspect]
     Active Substance: CITALOPRAM
     Dosage: 30 MG, QD
     Route: 065
     Dates: start: 201407, end: 201503
  37. CITALOPRAM [Suspect]
     Active Substance: CITALOPRAM
     Route: 065
     Dates: start: 2013
  38. CITALOPRAM [Suspect]
     Active Substance: CITALOPRAM
     Route: 065
     Dates: start: 2013
  39. CLOZARIL [Suspect]
     Active Substance: CLOZAPINE
     Dosage: 200 MG, QD
     Route: 065
     Dates: start: 201012, end: 201201
  40. CLOZARIL [Suspect]
     Active Substance: CLOZAPINE
     Dosage: 225 MG, QD
     Route: 065
     Dates: start: 201008
  41. CLOZARIL [Suspect]
     Active Substance: CLOZAPINE
     Dosage: 225 MG, QD
     Route: 065
     Dates: start: 201008
  42. CLOZARIL [Suspect]
     Active Substance: CLOZAPINE
     Dosage: 225 MG, BID
     Route: 065
     Dates: start: 201910, end: 20220112
  43. CLOZARIL [Suspect]
     Active Substance: CLOZAPINE
     Dosage: 250 MG, QD
     Route: 065
     Dates: start: 200909
  44. CLOZARIL [Suspect]
     Active Substance: CLOZAPINE
     Dosage: 250 MG, QD
     Route: 065
     Dates: start: 200909
  45. CLOZARIL [Suspect]
     Active Substance: CLOZAPINE
     Dosage: 275 MG, QD
     Route: 065
     Dates: start: 200811
  46. CLOZARIL [Suspect]
     Active Substance: CLOZAPINE
     Dosage: 275 MG, QD
     Route: 065
     Dates: start: 200811
  47. CLOZARIL [Suspect]
     Active Substance: CLOZAPINE
     Indication: Schizoaffective disorder
     Dosage: 325 MG, QD
     Route: 065
     Dates: start: 200806
  48. CLOZARIL [Suspect]
     Active Substance: CLOZAPINE
     Dosage: 325 MG, QD
     Route: 065
     Dates: start: 200806
  49. CLOZARIL [Suspect]
     Active Substance: CLOZAPINE
     Dosage: 350 MG, QD
     Route: 065
     Dates: start: 200605
  50. CLOZARIL [Suspect]
     Active Substance: CLOZAPINE
     Dosage: 350 MG, QD
     Route: 065
     Dates: start: 200605
  51. CLOZARIL [Suspect]
     Active Substance: CLOZAPINE
     Dosage: 375 MG, QD
     Route: 065
     Dates: start: 200605
  52. CLOZARIL [Suspect]
     Active Substance: CLOZAPINE
     Dosage: 375 MG, QD
     Route: 065
     Dates: start: 200605
  53. CLOZARIL [Suspect]
     Active Substance: CLOZAPINE
     Dosage: 400 MG, QD
     Route: 065
     Dates: start: 201701
  54. CLOZARIL [Suspect]
     Active Substance: CLOZAPINE
     Dosage: 400 MG, QD
     Route: 065
     Dates: start: 201701
  55. CLOZARIL [Suspect]
     Active Substance: CLOZAPINE
     Dosage: 450 MG, QD
     Route: 065
     Dates: start: 2019
  56. CLOZARIL [Suspect]
     Active Substance: CLOZAPINE
     Dosage: 450 MG, QD
     Route: 065
     Dates: start: 201910, end: 20220112
  57. CLOZARIL [Suspect]
     Active Substance: CLOZAPINE
     Dosage: 450 MG, QD450 MILLIGRAM, QD (450MG AT NIGHT START DATE:-2019)
     Route: 065
     Dates: start: 2019
  58. CLOZARIL [Suspect]
     Active Substance: CLOZAPINE
     Dosage: 500 MG, QD
     Route: 065
     Dates: start: 2013
  59. CLOZARIL [Suspect]
     Active Substance: CLOZAPINE
     Dosage: 500 MG, QD
     Route: 065
     Dates: start: 2013
  60. CLOZARIL [Suspect]
     Active Substance: CLOZAPINE
     Route: 065
     Dates: start: 201407, end: 201503
  61. CLOZARIL [Suspect]
     Active Substance: CLOZAPINE
     Route: 065
     Dates: start: 200301
  62. CLOZARIL [Suspect]
     Active Substance: CLOZAPINE
     Route: 065
     Dates: start: 200307
  63. CLOZARIL [Suspect]
     Active Substance: CLOZAPINE
     Route: 065
     Dates: start: 200311
  64. CLOZARIL [Suspect]
     Active Substance: CLOZAPINE
     Route: 065
     Dates: start: 200407
  65. CLOZARIL [Suspect]
     Active Substance: CLOZAPINE
     Route: 065
     Dates: start: 200505
  66. CLOZARIL [Suspect]
     Active Substance: CLOZAPINE
     Route: 065
     Dates: start: 200511
  67. CLOZARIL [Suspect]
     Active Substance: CLOZAPINE
     Route: 065
     Dates: start: 201605
  68. CLOZARIL [Suspect]
     Active Substance: CLOZAPINE
     Route: 065
     Dates: start: 201606
  69. CLOZARIL [Suspect]
     Active Substance: CLOZAPINE
     Route: 065
     Dates: start: 201607
  70. CLOZARIL [Suspect]
     Active Substance: CLOZAPINE
     Route: 065
     Dates: start: 201611
  71. CLOZARIL [Suspect]
     Active Substance: CLOZAPINE
     Route: 065
     Dates: start: 201509
  72. CLOZARIL [Suspect]
     Active Substance: CLOZAPINE
     Route: 048
     Dates: start: 20230720
  73. CLOZARIL [Suspect]
     Active Substance: CLOZAPINE
     Route: 048
     Dates: start: 20230720
  74. CLOZARIL [Suspect]
     Active Substance: CLOZAPINE
     Route: 065
     Dates: start: 200411
  75. CLOZARIL [Suspect]
     Active Substance: CLOZAPINE
     Indication: Schizophrenia
     Route: 065
     Dates: start: 200301
  76. CLOZARIL [Suspect]
     Active Substance: CLOZAPINE
     Route: 065
     Dates: start: 200307
  77. CLOZARIL [Suspect]
     Active Substance: CLOZAPINE
     Route: 065
     Dates: start: 200311
  78. CLOZARIL [Suspect]
     Active Substance: CLOZAPINE
     Route: 065
     Dates: start: 200407
  79. CLOZARIL [Suspect]
     Active Substance: CLOZAPINE
     Route: 065
     Dates: start: 200411
  80. CLOZARIL [Suspect]
     Active Substance: CLOZAPINE
     Route: 065
     Dates: start: 200505
  81. CLOZARIL [Suspect]
     Active Substance: CLOZAPINE
     Route: 065
     Dates: start: 200511
  82. CLOZARIL [Suspect]
     Active Substance: CLOZAPINE
     Route: 065
     Dates: start: 201605
  83. CLOZARIL [Suspect]
     Active Substance: CLOZAPINE
     Route: 065
     Dates: start: 201606
  84. CLOZARIL [Suspect]
     Active Substance: CLOZAPINE
     Route: 065
     Dates: start: 201607
  85. CLOZARIL [Suspect]
     Active Substance: CLOZAPINE
     Route: 065
     Dates: start: 201611
  86. CLOZARIL [Suspect]
     Active Substance: CLOZAPINE
     Route: 065
     Dates: start: 201509
  87. CARIPRAZINE [Suspect]
     Active Substance: CARIPRAZINE
     Indication: Product used for unknown indication
     Dosage: 3 MG, QD
     Route: 050
     Dates: start: 202208
  88. CARIPRAZINE [Suspect]
     Active Substance: CARIPRAZINE
     Dosage: 6 MG, QD
     Route: 050
     Dates: start: 202212, end: 202303
  89. CARIPRAZINE [Suspect]
     Active Substance: CARIPRAZINE
     Dosage: 6 MG, QD
     Route: 050
     Dates: start: 202303, end: 202305
  90. CARIPRAZINE [Suspect]
     Active Substance: CARIPRAZINE
     Dosage: 3 MG, QD
     Route: 065
     Dates: start: 202208
  91. FERROUS SULFATE\FOLIC ACID [Suspect]
     Active Substance: FERROUS SULFATE\FOLIC ACID
     Indication: Product used for unknown indication
     Route: 065
  92. FLUPENTIXOL DECANOATE [Suspect]
     Active Substance: FLUPENTIXOL DECANOATE
     Dosage: 200 MG, QW
     Route: 050
     Dates: start: 202212, end: 202303
  93. FLUPENTIXOL DECANOATE [Suspect]
     Active Substance: FLUPENTIXOL DECANOATE
     Dosage: 200 MG, QW
     Route: 065
     Dates: start: 202303, end: 202305
  94. FLUPENTIXOL DECANOATE [Suspect]
     Active Substance: FLUPENTIXOL DECANOATE
     Dosage: 200 MG, QW
     Route: 065
     Dates: start: 202303, end: 202305
  95. FLUPENTIXOL DECANOATE [Suspect]
     Active Substance: FLUPENTIXOL DECANOATE
     Indication: Product used for unknown indication
     Dosage: 400 MG, QW
     Route: 050
     Dates: start: 202208
  96. FLUPENTIXOL DECANOATE [Suspect]
     Active Substance: FLUPENTIXOL DECANOATE
     Dosage: 400 MG, QW
     Route: 065
     Dates: start: 202208
  97. HALOPERIDOL [Suspect]
     Active Substance: HALOPERIDOL
     Indication: Product used for unknown indication
     Route: 065
  98. LORAZEPAM [Suspect]
     Active Substance: LORAZEPAM
     Indication: Product used for unknown indication
     Dosage: 1 MILLIGRAM, BID ( (PO/IM) 1-2MG (MAX 4MG IN 24 HOURS START DATE: ??-SEP-2015)
     Route: 050
     Dates: start: 201509
  99. LORAZEPAM [Suspect]
     Active Substance: LORAZEPAM
     Dosage: 1 MG, BID
     Route: 065
     Dates: start: 201509
  100. RISPERIDONE [Suspect]
     Active Substance: RISPERIDONE
     Indication: Product used for unknown indication
     Route: 050
     Dates: start: 200210
  101. RISPERIDONE [Suspect]
     Active Substance: RISPERIDONE
     Route: 065
     Dates: start: 201302
  102. VALPROATE SODIUM [Suspect]
     Active Substance: VALPROATE SODIUM
     Dosage: 500 MG, BID
     Route: 050
     Dates: start: 201607
  103. VALPROATE SODIUM [Suspect]
     Active Substance: VALPROATE SODIUM
     Indication: Product used for unknown indication
     Dosage: 750 MG, BID
     Route: 050
     Dates: start: 201605
  104. VALPROATE SODIUM [Suspect]
     Active Substance: VALPROATE SODIUM
     Dosage: 750 MG, BID
     Route: 050
     Dates: start: 201606
  105. VALPROATE SODIUM [Suspect]
     Active Substance: VALPROATE SODIUM
     Dosage: 750 MG, BID
     Route: 065
     Dates: start: 202303, end: 202305
  106. VALPROATE SODIUM [Suspect]
     Active Substance: VALPROATE SODIUM
     Dosage: 500 MG, BID
     Route: 065
     Dates: start: 201607
  107. VALPROATE SODIUM [Suspect]
     Active Substance: VALPROATE SODIUM
     Dosage: 750 MG, BID
     Route: 050
     Dates: start: 202303, end: 202305
  108. VALPROATE SODIUM [Suspect]
     Active Substance: VALPROATE SODIUM
     Dosage: 750 MG, BID
     Route: 065
     Dates: start: 201605
  109. VALPROATE SODIUM [Suspect]
     Active Substance: VALPROATE SODIUM
     Dosage: 750 MG, BID
     Route: 065
     Dates: start: 201606
  110. CHOLECALCIFEROL [Concomitant]
     Active Substance: CHOLECALCIFEROL
     Dosage: 800 IU, QD
     Route: 065
  111. CHOLECALCIFEROL [Concomitant]
     Active Substance: CHOLECALCIFEROL
     Indication: Product used for unknown indication
     Dosage: 800 IU, QD
     Route: 065
  112. Ensure compact [Concomitant]
     Indication: Product used for unknown indication
     Route: 065
  113. Flexitol heel [Concomitant]
     Indication: Product used for unknown indication
     Dosage: UNK UNK, BID
     Route: 065
  114. FOLIC ACID\IRON\MINERALS\VITAMINS [Concomitant]
     Active Substance: FOLIC ACID\IRON\MINERALS\VITAMINS
     Indication: Product used for unknown indication
     Dosage: 1 DF, QD (ONE TABLET ONCE DAILY)
     Route: 065
  115. LACTULOSE [Concomitant]
     Active Substance: LACTULOSE
     Route: 065
  116. LACTULOSE [Concomitant]
     Active Substance: LACTULOSE
     Indication: Product used for unknown indication
     Dosage: 15 ML, TID
     Route: 065
  117. ACETAMINOPHEN [Concomitant]
     Active Substance: ACETAMINOPHEN
     Dosage: 1 GRAM (MAX 4G IN 24 HOURS)
     Route: 065
  118. ACETAMINOPHEN [Concomitant]
     Active Substance: ACETAMINOPHEN
     Indication: Product used for unknown indication
     Route: 065
  119. PROCYCLIDINE [Concomitant]
     Active Substance: PROCYCLIDINE
     Indication: Product used for unknown indication
     Dosage: 2.5 MILLIGRAM (MAX 10MG IN 24 HOURS)
     Route: 065
  120. PROMETHAZINE [Concomitant]
     Active Substance: PROMETHAZINE HYDROCHLORIDE
     Indication: Product used for unknown indication
     Route: 065
  121. THIAMINE [Concomitant]
     Active Substance: THIAMINE
     Dosage: 100 MG, BID
     Route: 065
  122. THIAMINE [Concomitant]
     Active Substance: THIAMINE
     Indication: Product used for unknown indication
     Dosage: 200 MG, BID
     Route: 065
  123. VITAMIN B [Concomitant]
     Active Substance: VITAMIN B
     Indication: Product used for unknown indication
     Dosage: 1 DF, QD
     Route: 065

REACTIONS (33)
  - Hallucination, auditory [Not Recovered/Not Resolved]
  - Pneumonia aspiration [Unknown]
  - Suicidal ideation [Unknown]
  - Delusion of grandeur [Unknown]
  - Neglect of personal appearance [Unknown]
  - Aggression [Unknown]
  - Accidental exposure to product [Unknown]
  - COVID-19 [Unknown]
  - Delusion [Not Recovered/Not Resolved]
  - Cardiac arrest [Unknown]
  - Dystonia [Unknown]
  - Mental impairment [Unknown]
  - Thinking abnormal [Not Recovered/Not Resolved]
  - Weight decreased [Unknown]
  - Eating disorder [Unknown]
  - Strabismus [Unknown]
  - Slow speech [Unknown]
  - Acne [Unknown]
  - Vitamin D decreased [Unknown]
  - Red blood cell sedimentation rate decreased [Unknown]
  - Psoriasis [Unknown]
  - Depressed mood [Unknown]
  - Insomnia [Unknown]
  - Withdrawal syndrome [Unknown]
  - Orthostatic hypotension [Unknown]
  - Sedation [Unknown]
  - Neutrophil count decreased [Not Recovered/Not Resolved]
  - Lymphocyte count decreased [Unknown]
  - Blood prolactin increased [Unknown]
  - Overdose [Unknown]
  - Drug ineffective [Unknown]
  - Off label use [Unknown]
  - Treatment noncompliance [Unknown]
